FAERS Safety Report 25040364 (Version 1)
Quarter: 2025Q1

REPORT INFORMATION
  Report Type: Spontaneous
  Country: NP (occurrence: None)
  Receive Date: 20250305
  Receipt Date: 20250305
  Transmission Date: 20250409
  Serious: Yes (Life-Threatening, Hospitalization)
  Sender: CMP PHARMA
  Company Number: NP-CMPPHARMA-000487

PATIENT
  Age: 21 Year
  Sex: Male

DRUGS (1)
  1. NORLIQVA [Suspect]
     Active Substance: AMLODIPINE
     Indication: Product used for unknown indication

REACTIONS (4)
  - Non-cardiogenic pulmonary oedema [Recovered/Resolved]
  - Toxicity to various agents [Recovered/Resolved]
  - Overdose [Unknown]
  - Incorrect dose administered [Unknown]
